FAERS Safety Report 5939925-4 (Version None)
Quarter: 2008Q4

REPORT INFORMATION
  Report Type: 
  Country: None (occurrence: None)
  Receive Date: 20081030
  Receipt Date: 20081030
  Transmission Date: 20090506
  Serious: No
  Sender: FDA-Public Use
  Company Number: None

PATIENT
  Sex: Female
  Weight: 70.7611 kg

DRUGS (8)
  1. LAMOTRIGINE [Suspect]
     Indication: COMPLEX PARTIAL SEIZURES
     Dosage: 200 MG BID PO/047 150 MG EVERY AFTERNOON PO/047
     Route: 048
     Dates: start: 20080815, end: 20080917
  2. METOPROLOL TARTRATE [Concomitant]
  3. HYDOCHOLORTHIAZIDE [Concomitant]
  4. NEXIUM [Concomitant]
  5. ZOLOFT [Concomitant]
  6. PREVACID [Concomitant]
  7. ACETAMINOPHEN [Concomitant]
  8. ASPIRIN [Concomitant]

REACTIONS (6)
  - APATHY [None]
  - CONDITION AGGRAVATED [None]
  - CONVULSION [None]
  - LETHARGY [None]
  - SOMNOLENCE [None]
  - THERAPEUTIC RESPONSE UNEXPECTED WITH DRUG SUBSTITUTION [None]
